FAERS Safety Report 20584727 (Version 5)
Quarter: 2023Q2

REPORT INFORMATION
  Report Type: Report from Study
  Country: CO (occurrence: CO)
  Receive Date: 20220311
  Receipt Date: 20230608
  Transmission Date: 20230721
  Serious: Yes (Hospitalization, Other)
  Sender: FDA-Public Use
  Company Number: CO-ABBVIE-21K-036-4153348-00

PATIENT
  Sex: Female
  Weight: 55 kg

DRUGS (3)
  1. HUMIRA [Suspect]
     Active Substance: ADALIMUMAB
     Indication: Rheumatoid arthritis
     Route: 058
     Dates: start: 20141002
  2. HUMIRA [Suspect]
     Active Substance: ADALIMUMAB
  3. ACETAMINOPHEN [Concomitant]
     Active Substance: ACETAMINOPHEN
     Indication: Rheumatoid arthritis
     Dosage: 1 TABLET AT NIGHT, AS REQUIRED
     Route: 048
     Dates: start: 2016

REACTIONS (27)
  - Musculoskeletal disorder [Not Recovered/Not Resolved]
  - Hypoaesthesia [Not Recovered/Not Resolved]
  - Inflammation [Not Recovered/Not Resolved]
  - Memory impairment [Not Recovered/Not Resolved]
  - Patent ductus arteriosus [Recovering/Resolving]
  - Pain [Not Recovered/Not Resolved]
  - Grip strength decreased [Not Recovered/Not Resolved]
  - Hypoxia [Recovering/Resolving]
  - Cardiovascular disorder [Not Recovered/Not Resolved]
  - Arthropathy [Not Recovered/Not Resolved]
  - Malaise [Recovered/Resolved]
  - Gait disturbance [Not Recovered/Not Resolved]
  - Muscular weakness [Not Recovered/Not Resolved]
  - Weight decreased [Recovering/Resolving]
  - Dysphonia [Recovered/Resolved]
  - Varicose vein [Not Recovered/Not Resolved]
  - Malaise [Not Recovered/Not Resolved]
  - Asthenia [Not Recovered/Not Resolved]
  - Catarrh [Recovered/Resolved]
  - Nasal congestion [Recovered/Resolved]
  - Headache [Recovered/Resolved]
  - Discomfort [Recovered/Resolved]
  - Pyrexia [Not Recovered/Not Resolved]
  - Headache [Not Recovered/Not Resolved]
  - Influenza [Unknown]
  - Neck pain [Not Recovered/Not Resolved]
  - Gait disturbance [Not Recovered/Not Resolved]

NARRATIVE: CASE EVENT DATE: 20210101
